FAERS Safety Report 14525571 (Version 1)
Quarter: 2018Q1

REPORT INFORMATION
  Report Type: Spontaneous
  Country: US (occurrence: US)
  Receive Date: 20180211
  Receipt Date: 20180211
  Transmission Date: 20180509
  Serious: Yes (Hospitalization)
  Sender: FDA-Public Use
  Company Number: None

PATIENT
  Age: 22 Year
  Sex: Female
  Weight: 60.75 kg

DRUGS (1)
  1. TAMIFLU [Suspect]
     Active Substance: OSELTAMIVIR PHOSPHATE
     Indication: INFLUENZA
     Dosage: ?          QUANTITY:10 CAPSULE(S);?
     Route: 048
     Dates: start: 20180208, end: 20180210

REACTIONS (12)
  - Cerebral disorder [None]
  - Hot flush [None]
  - Crying [None]
  - Sensory disturbance [None]
  - Insomnia [None]
  - Mania [None]
  - Feeling cold [None]
  - Hypoaesthesia [None]
  - Feeling jittery [None]
  - Feeling abnormal [None]
  - Blindness transient [None]
  - Anxiety [None]

NARRATIVE: CASE EVENT DATE: 20180210
